FAERS Safety Report 15636636 (Version 1)
Quarter: 2018Q4

REPORT INFORMATION
  Report Type: Spontaneous
  Country: US (occurrence: US)
  Receive Date: 20181120
  Receipt Date: 20181120
  Transmission Date: 20190205
  Serious: Yes (Hospitalization, Other)
  Sender: FDA-Public Use
  Company Number: US-ALEMBIC PHARMACUETICALS LIMITED-2018SCAL000855

PATIENT

DRUGS (1)
  1. LITHIUM CARBONATE. [Suspect]
     Active Substance: LITHIUM CARBONATE
     Indication: BIPOLAR DISORDER
     Dosage: UNK

REACTIONS (15)
  - Toxicity to various agents [Unknown]
  - Mental status changes [Unknown]
  - Balance disorder [Unknown]
  - Clonus [Unknown]
  - Renal failure [Unknown]
  - Dysarthria [Unknown]
  - Toxic encephalopathy [Unknown]
  - Agitation [Unknown]
  - Normocytic anaemia [Unknown]
  - Acute kidney injury [Unknown]
  - Diabetes insipidus [Unknown]
  - Confusional state [Unknown]
  - Ataxia [Unknown]
  - Muscle rigidity [Unknown]
  - Metabolic acidosis [Unknown]
